FAERS Safety Report 19947909 (Version 1)
Quarter: 2021Q4

REPORT INFORMATION
  Report Type: Report from Study
  Country: RO (occurrence: RO)
  Receive Date: 20211012
  Receipt Date: 20211012
  Transmission Date: 20220304
  Serious: Yes (Other)
  Sender: FDA-Public Use
  Company Number: RO-CELLTRION HEALTHCARE HUNGARY KFT-2020RO022891

PATIENT

DRUGS (9)
  1. TRASTUZUMAB [Suspect]
     Active Substance: TRASTUZUMAB
     Indication: Breast cancer metastatic
     Dosage: 600 MILLIGRAM, Q3W
     Route: 041
     Dates: start: 20181106
  2. TRASTUZUMAB [Suspect]
     Active Substance: TRASTUZUMAB
     Dosage: 6 MILLIGRAM
     Route: 041
     Dates: start: 20190612, end: 20190814
  3. ANASTROZOLE [Suspect]
     Active Substance: ANASTROZOLE
     Indication: Breast cancer metastatic
     Dosage: 1 MILLIGRAM, QD
     Route: 048
     Dates: start: 20190513
  4. CYCLOPHOSPHAMIDE [Suspect]
     Active Substance: CYCLOPHOSPHAMIDE
     Indication: Breast cancer metastatic
     Dosage: 1200 MILLIGRAM, Q3W
     Route: 042
     Dates: start: 20180807, end: 20181015
  5. CYCLOPHOSPHAMIDE [Suspect]
     Active Substance: CYCLOPHOSPHAMIDE
     Dosage: 600 MILLIGRAM, Q3W
     Route: 042
     Dates: start: 20190905
  6. DOCETAXEL [Suspect]
     Active Substance: DOCETAXEL
     Indication: Breast cancer metastatic
     Dosage: 150 MILLIGRAM, Q3W
     Route: 042
     Dates: start: 20181106, end: 20190208
  7. DOCETAXEL [Suspect]
     Active Substance: DOCETAXEL
     Dosage: 75 MILLIGRAM, Q3W
     Route: 042
     Dates: start: 20190612, end: 20190814
  8. DOXORUBICIN [Suspect]
     Active Substance: DOXORUBICIN
     Indication: Breast cancer metastatic
     Dosage: 120 MILLIGRAM, Q3W
     Route: 042
     Dates: start: 20180807, end: 20181015
  9. EPIRUBICIN [Suspect]
     Active Substance: EPIRUBICIN
     Indication: Breast cancer metastatic
     Dosage: 100 MILLIGRAM, Q3W
     Route: 042
     Dates: start: 20190905

REACTIONS (2)
  - Cardiotoxicity [Recovered/Resolved]
  - Off label use [Unknown]
